FAERS Safety Report 4635184-3 (Version None)
Quarter: 2005Q2

REPORT INFORMATION
  Report Type: 
  Country: None (occurrence: None)
  Receive Date: 20050414
  Receipt Date: 20050406
  Transmission Date: 20051028
  Serious: Yes (Disabling)
  Sender: FDA-Public Use
  Company Number: GB-JNJFOC-20050402089

PATIENT
  Age: 63 Year
  Sex: Female
  Weight: 102 kg

DRUGS (1)
  1. SPORANOX [Suspect]
     Indication: FUNGAL INFECTION
     Route: 049
     Dates: start: 20050216, end: 20050221

REACTIONS (4)
  - AGEUSIA [None]
  - DRY EYE [None]
  - DRY MOUTH [None]
  - SPEECH DISORDER [None]
